FAERS Safety Report 6390078-0 (Version None)
Quarter: 2009Q4

REPORT INFORMATION
  Report Type: 
  Country: None (occurrence: None)
  Receive Date: 20091006
  Receipt Date: 20090929
  Transmission Date: 20100525
  Serious: Yes (Life-Threatening, Hospitalization)
  Sender: FDA-Public Use
  Company Number: US-B.I. PHARMACEUTICALS,INC./RIDGEFIELD-2007-DE-03800GD

PATIENT
  Age: 67 Year
  Sex: Female

DRUGS (3)
  1. DIPYRIDAMOLE AMPOULE [Suspect]
     Indication: CARDIAC PHARMACOLOGIC STRESS TEST
  2. THEOPHYLLINE [Suspect]
  3. METOPROLOL [Suspect]
     Indication: HYPERTENSION
     Dosage: 100 MG

REACTIONS (6)
  - ATRIAL FIBRILLATION [None]
  - CARDIAC ARREST [None]
  - CHEST DISCOMFORT [None]
  - DIZZINESS [None]
  - LOSS OF CONSCIOUSNESS [None]
  - NAUSEA [None]
